FAERS Safety Report 5190645-6 (Version None)
Quarter: 2006Q4

REPORT INFORMATION
  Report Type: 
  Country: None (occurrence: None)
  Receive Date: 20061222
  Receipt Date: 20061025
  Transmission Date: 20070319
  Serious: No
  Sender: FDA-Public Use
  Company Number: US-BRISTOL-MYERS SQUIBB COMPANY-13556022

PATIENT
  Age: 60 Year
  Sex: Male
  Weight: 73 kg

DRUGS (2)
  1. ORENCIA [Suspect]
     Indication: RHEUMATOID ARTHRITIS
     Dates: start: 20060701
  2. METHADONE HCL [Concomitant]
     Indication: BACK PAIN
     Dosage: 10-15 MG AS NEEDED FOR BACK PAIN.

REACTIONS (2)
  - FREQUENT BOWEL MOVEMENTS [None]
  - RHEUMATOID ARTHRITIS [None]
